FAERS Safety Report 5026677-8 (Version None)
Quarter: 2006Q2

REPORT INFORMATION
  Report Type: 
  Country: None (occurrence: None)
  Receive Date: 20060615
  Receipt Date: 20060606
  Transmission Date: 20061013
  Serious: Yes (Other)
  Sender: FDA-Public Use
  Company Number: GB-GLAXOSMITHKLINE-B0427462A

PATIENT
  Age: 15 Year
  Sex: Male

DRUGS (4)
  1. LAMOTRIGINE [Suspect]
     Route: 065
  2. VALPROATE SODIUM [Suspect]
  3. TOPIRAMATE [Suspect]
  4. CLOBAZAM [Suspect]

REACTIONS (4)
  - AUTOMATISM [None]
  - CONFUSIONAL STATE [None]
  - DRUG INEFFECTIVE [None]
  - PETIT MAL EPILEPSY [None]
